FAERS Safety Report 17064261 (Version 7)
Quarter: 2022Q2

REPORT INFORMATION
  Report Type: Spontaneous
  Country: US (occurrence: US)
  Receive Date: 20191122
  Receipt Date: 20220502
  Transmission Date: 20220721
  Serious: No
  Sender: FDA-Public Use
  Company Number: US-PFIZER INC-2019498099

PATIENT
  Age: 55 Year
  Sex: Female

DRUGS (4)
  1. LYRICA [Suspect]
     Active Substance: PREGABALIN
     Indication: Pain in extremity
     Dosage: 200 MG, 2X/DAY
     Route: 048
     Dates: start: 20150422
  2. LYRICA [Suspect]
     Active Substance: PREGABALIN
     Indication: Multiple sclerosis
     Dosage: 200 MG, 3X/DAY (TID)
     Route: 048
     Dates: end: 20201210
  3. LYRICA [Suspect]
     Active Substance: PREGABALIN
     Indication: Lhermitte^s sign
     Dosage: 200 MG, 2X/DAY
     Route: 048
  4. NORCO [Concomitant]
     Active Substance: ACETAMINOPHEN\HYDROCODONE BITARTRATE
     Indication: Pain
     Dosage: UNK (3-4 TABS PER DAY)

REACTIONS (10)
  - Drug ineffective [Unknown]
  - Intentional product use issue [Unknown]
  - Product dose omission issue [Unknown]
  - Asthenia [Unknown]
  - Headache [Unknown]
  - Back pain [Unknown]
  - Fatigue [Unknown]
  - Myalgia [Unknown]
  - Anxiety [Unknown]
  - Depressed mood [Unknown]
